FAERS Safety Report 7700202-2 (Version None)
Quarter: 2011Q3

REPORT INFORMATION
  Report Type: 
  Country: None (occurrence: None)
  Receive Date: 20110822
  Receipt Date: 20110809
  Transmission Date: 20111222
  Serious: Yes (Life-Threatening, Hospitalization)
  Sender: FDA-Public Use
  Company Number: US-JNJFOC-20110805840

PATIENT
  Age: 72 Year
  Sex: Female

DRUGS (7)
  1. ASPIRIN [Suspect]
     Route: 065
  2. CLOPIDOGREL [Suspect]
     Indication: ANTIPLATELET THERAPY
  3. METOPROLOL SUCCINATE [Concomitant]
     Indication: PRODUCT USED FOR UNKNOWN INDICATION
     Route: 065
  4. ASPIRIN [Suspect]
     Indication: ANTIPLATELET THERAPY
     Route: 065
  5. INSULIN [Concomitant]
     Indication: PRODUCT USED FOR UNKNOWN INDICATION
     Route: 065
  6. CLOPIDOGREL [Suspect]
  7. METFORMIN HYDROCHLORIDE [Concomitant]
     Indication: PRODUCT USED FOR UNKNOWN INDICATION
     Route: 065

REACTIONS (6)
  - GASTRITIS [None]
  - HELICOBACTER INFECTION [None]
  - ORTHOSTATIC HYPOTENSION [None]
  - HAEMATEMESIS [None]
  - MELAENA [None]
  - DUODENAL ULCER [None]
